FAERS Safety Report 24957379 (Version 2)
Quarter: 2025Q2

REPORT INFORMATION
  Report Type: Spontaneous
  Country: US (occurrence: US)
  Receive Date: 20250211
  Receipt Date: 20250422
  Transmission Date: 20250716
  Serious: No
  Sender: CASPER PHARMA
  Company Number: US-CASPERPHARMA-US-2025RISSPO00051

PATIENT
  Sex: Female

DRUGS (1)
  1. VITAMIN A PALMITATE [Suspect]
     Active Substance: VITAMIN A PALMITATE
     Indication: Product used for unknown indication
     Route: 065

REACTIONS (1)
  - Pain [Unknown]
